FAERS Safety Report 12850549 (Version 1)
Quarter: 2016Q4

REPORT INFORMATION
  Report Type: Spontaneous
  Country: US (occurrence: US)
  Receive Date: 20161014
  Receipt Date: 20161014
  Transmission Date: 20170207
  Serious: No
  Sender: FDA-Public Use
  Company Number: US-PURDUE-USA-2016-0133721

PATIENT
  Age: 64 Year
  Sex: Male

DRUGS (1)
  1. HYDROCODONE BITARTRATE AND ACETAMINOPHEN [Suspect]
     Active Substance: ACETAMINOPHEN\HYDROCODONE BITARTRATE
     Indication: PAIN MANAGEMENT
     Dosage: 3.5 MG, BID
     Route: 048
     Dates: start: 2012, end: 20160906

REACTIONS (2)
  - Initial insomnia [Unknown]
  - Pain [Unknown]

NARRATIVE: CASE EVENT DATE: 20160903
